FAERS Safety Report 6046589-0 (Version None)
Quarter: 2009Q1

REPORT INFORMATION
  Report Type: 
  Country: None (occurrence: None)
  Receive Date: 20090122
  Receipt Date: 20090112
  Transmission Date: 20090719
  Serious: Yes (Other)
  Sender: FDA-Public Use
  Company Number: PHBS2009CA00477

PATIENT
  Age: 70 Year
  Sex: Female

DRUGS (6)
  1. PAMIDRONATE DISODIUM [Suspect]
     Dosage: 90 MG/MONTH
     Route: 042
  2. FLUOROURACIL + CYCLOPHOSPHAMIDE [Suspect]
     Indication: METASTASES TO LIVER
  3. FLUOROURACIL + CYCLOPHOSPHAMIDE [Suspect]
     Indication: METASTASES TO BONE
  4. DOCETAXEL [Suspect]
  5. GEMCITABINE [Suspect]
  6. CAPECITABINE [Suspect]

REACTIONS (8)
  - BONE DISORDER [None]
  - BUCCAL MUCOSAL ROUGHENING [None]
  - INFECTION [None]
  - MALIGNANT NEOPLASM PROGRESSION [None]
  - MUCOSAL INFLAMMATION [None]
  - ORAL SURGERY [None]
  - OSTEONECROSIS [None]
  - SWELLING FACE [None]
